FAERS Safety Report 6747739-0 (Version None)
Quarter: 2010Q2

REPORT INFORMATION
  Report Type: 
  Country: None (occurrence: None)
  Receive Date: 20100528
  Receipt Date: 20100519
  Transmission Date: 20101027
  Serious: Yes (Other)
  Sender: FDA-Public Use
  Company Number: US-SANOFI-AVENTIS-2010SA029527

PATIENT
  Age: 72 Year
  Sex: Female

DRUGS (8)
  1. PLAVIX [Suspect]
     Route: 048
     Dates: start: 20001106
  2. PERCOCET [Suspect]
     Indication: PAIN
     Route: 065
  3. VICODIN [Suspect]
     Indication: PAIN
     Route: 065
  4. NEURONTIN [Suspect]
     Indication: PAIN
     Route: 065
  5. DARVOCET-N 100 [Suspect]
     Indication: PAIN
     Route: 065
  6. ASPIRIN [Concomitant]
  7. KAPIDEX [Concomitant]
     Indication: GASTRIC DISORDER
  8. ALL OTHER THERAPEUTIC PRODUCTS [Concomitant]

REACTIONS (9)
  - ABDOMINAL PAIN [None]
  - ABDOMINAL PAIN UPPER [None]
  - ARRHYTHMIA [None]
  - ASTHENIA [None]
  - CONSTIPATION [None]
  - DECREASED APPETITE [None]
  - NAUSEA [None]
  - OSTEOARTHRITIS [None]
  - WHITE BLOOD CELL COUNT DECREASED [None]
